FAERS Safety Report 11196255 (Version 1)
Quarter: 2015Q2

REPORT INFORMATION
  Report Type: Spontaneous
  Country: US (occurrence: US)
  Receive Date: 20150617
  Receipt Date: 20150617
  Transmission Date: 20150821
  Serious: No
  Sender: FDA-Public Use
  Company Number: US-PFIZER INC-2015198833

PATIENT
  Sex: Female

DRUGS (2)
  1. LYBREL [Suspect]
     Active Substance: ETHINYL ESTRADIOL\LEVONORGESTREL
     Indication: CONTRACEPTION
     Dosage: UNK
  2. HARVONI [Interacting]
     Active Substance: LEDIPASVIR\SOFOSBUVIR
     Dosage: UNK

REACTIONS (3)
  - Amenorrhoea [Unknown]
  - Drug interaction [Unknown]
  - Metrorrhagia [Unknown]
